FAERS Safety Report 9775626 (Version 1)
Quarter: 2013Q4

REPORT INFORMATION
  Report Type: Spontaneous
  Country: FR (occurrence: None)
  Receive Date: 20131218
  Receipt Date: 20131218
  Transmission Date: 20140711
  Serious: Yes (Death)
  Sender: FDA-Public Use
  Company Number: FK201305380

PATIENT
  Age: 78 Year
  Sex: Male

DRUGS (2)
  1. PACLITAXEL [Suspect]
     Indication: PRODUCT USED FOR UNKNOWN INDICATION
     Dosage: 144 MG, INTRAVENOUS (NOT OTHERWISE SPECIFIED)
     Route: 042
     Dates: start: 20131023, end: 20131030
  2. HERCEPTIN (TRASTUZUMAB) [Concomitant]

REACTIONS (3)
  - Interstitial lung disease [None]
  - Hypertension [None]
  - Atrial fibrillation [None]
